APPROVED DRUG PRODUCT: INLYTA
Active Ingredient: AXITINIB
Strength: 1MG
Dosage Form/Route: TABLET;ORAL
Application: N202324 | Product #001 | TE Code: AB
Applicant: PF PRISM CV
Approved: Jan 27, 2012 | RLD: Yes | RS: No | Type: RX

PATENTS:
Patent 10570202 | Expires: Feb 3, 2035
Patent 10869924 | Expires: Jan 12, 2037
Patent 8791140 | Expires: Dec 14, 2030
Patent 8791140*PED | Expires: Jun 14, 2031
Patent 10869924*PED | Expires: Jul 12, 2037
Patent 10570202*PED | Expires: Aug 3, 2035